FAERS Safety Report 4594851-0 (Version None)
Quarter: 2005Q1

REPORT INFORMATION
  Report Type: 
  Country: None (occurrence: None)
  Receive Date: 20050223
  Receipt Date: 20050211
  Transmission Date: 20050727
  Serious: Yes (Hospitalization)
  Sender: FDA-Public Use
  Company Number: 211075

PATIENT
  Age: 82 Year
  Sex: Male
  Weight: 93 kg

DRUGS (10)
  1. AVASTIN [Suspect]
     Indication: COLON CANCER METASTATIC
     Dosage: 500 MG, Q2W, INTRAVENOUS
     Route: 042
     Dates: start: 20040524, end: 20041208
  2. ELOXATIN [Concomitant]
  3. FLUOROURACIL [Concomitant]
  4. LEUCOVORIN CALCIUM [Concomitant]
  5. VASOTEC [Concomitant]
  6. LASIX [Concomitant]
  7. PRILOSEC [Concomitant]
  8. TOPROL-XL [Concomitant]
  9. K-DUR 10 [Concomitant]
  10. LIPITOR [Concomitant]

REACTIONS (2)
  - ACUTE MYOCARDIAL INFARCTION [None]
  - BLOOD PRESSURE SYSTOLIC INCREASED [None]
